FAERS Safety Report 11358699 (Version 2)
Quarter: 2015Q3

REPORT INFORMATION
  Report Type: Spontaneous
  Country: GB (occurrence: None)
  Receive Date: 20150806
  Receipt Date: 20150821
  Transmission Date: 20151125
  Serious: Yes (Death)
  Sender: FDA-Public Use
  Company Number: GB-LHC-2015100

PATIENT
  Age: 18 Year
  Sex: Male

DRUGS (1)
  1. NITROUS OXIDE (GENERIC) (NITROUS OXIDE) (***) (NITROUS OXIDE) (VERUM) [Suspect]
     Active Substance: NITROUS OXIDE
     Route: 055
     Dates: start: 20150725, end: 20150725

REACTIONS (3)
  - Fall [None]
  - Cardiac arrest [None]
  - Drug abuse [None]

NARRATIVE: CASE EVENT DATE: 20150725
